FAERS Safety Report 14259977 (Version 1)
Quarter: 2017Q4

REPORT INFORMATION
  Report Type: Spontaneous
  Country: US (occurrence: US)
  Receive Date: 20171207
  Receipt Date: 20171207
  Transmission Date: 20180321
  Serious: No
  Sender: FDA-Public Use
  Company Number: US-VIFOR (INTERNATIONAL) INC.-VIT-2017-10468

PATIENT
  Sex: Male

DRUGS (11)
  1. PYRIDOXINE HYDROCHLORIDE~~THIAMINE HYDROCHLORIDE~~CYANOCOBALAMIN~~RIBOFLAVIN~~NICOTINAMIDE~~CALCIUM [Concomitant]
  2. COLECALCIFEROL [Concomitant]
     Active Substance: CHOLECALCIFEROL
  3. VITAMINS NOS [Concomitant]
     Active Substance: VITAMINS
  4. RENVELA [Concomitant]
     Active Substance: SEVELAMER CARBONATE
  5. METOPROLOL TARTRATE. [Concomitant]
     Active Substance: METOPROLOL TARTRATE
  6. PORCINE [Concomitant]
  7. ARANESP [Concomitant]
     Active Substance: DARBEPOETIN ALFA
  8. VELTASSA [Suspect]
     Active Substance: PATIROMER
     Indication: HYPERKALAEMIA
     Route: 048
     Dates: start: 20170725
  9. SENSIPAR [Concomitant]
     Active Substance: CINACALCET HYDROCHLORIDE
  10. MINOXIDIL. [Concomitant]
     Active Substance: MINOXIDIL
  11. ALBUMIN NOS [Concomitant]

REACTIONS (1)
  - Blood potassium increased [Unknown]
